FAERS Safety Report 21718619 (Version 1)
Quarter: 2022Q4

REPORT INFORMATION
  Report Type: Spontaneous
  Country: US (occurrence: US)
  Receive Date: 20221213
  Receipt Date: 20221213
  Transmission Date: 20230113
  Serious: No
  Sender: FDA-Public Use
  Company Number: US-BRISTOL-MYERS SQUIBB COMPANY-2022-152102

PATIENT
  Age: 65 Year
  Sex: Female
  Weight: 52.62 kg

DRUGS (1)
  1. ELIQUIS [Suspect]
     Active Substance: APIXABAN
     Indication: Renal vein embolism
     Dosage: DOSE : UNAVAILABLE;     FREQ : TWICE DAILY
     Route: 048
     Dates: start: 202210

REACTIONS (2)
  - Dysstasia [Unknown]
  - Off label use [Unknown]

NARRATIVE: CASE EVENT DATE: 20220101
